FAERS Safety Report 6880455-3 (Version None)
Quarter: 2010Q3

REPORT INFORMATION
  Report Type: 
  Country: None (occurrence: None)
  Receive Date: 20100727
  Receipt Date: 20100708
  Transmission Date: 20110219
  Serious: Yes (Hospitalization)
  Sender: FDA-Public Use
  Company Number: A0866855A

PATIENT
  Age: 51 Year
  Sex: Female
  Weight: 101.4 kg

DRUGS (16)
  1. AVANDIA [Suspect]
     Indication: DIABETES MELLITUS
     Route: 048
     Dates: start: 20020101
  2. AVANDAMET [Suspect]
     Route: 048
  3. LISINOPRIL AND HYDROCHLOROTHIAZIDE [Concomitant]
  4. VERAPAMIL [Concomitant]
  5. PAXIL [Concomitant]
  6. PEPCID [Concomitant]
  7. REGLAN [Concomitant]
  8. ZOCOR [Concomitant]
  9. DETROL [Concomitant]
  10. ALBUTEROL [Concomitant]
  11. METFORMIN HCL [Concomitant]
  12. AZMACORT [Concomitant]
  13. CELEBREX [Concomitant]
  14. PREMARIN [Concomitant]
  15. ZIAC [Concomitant]
  16. ZESTRIL [Concomitant]

REACTIONS (1)
  - ISCHAEMIC STROKE [None]
